FAERS Safety Report 8189645-3 (Version None)
Quarter: 2012Q1

REPORT INFORMATION
  Report Type: 
  Country: None (occurrence: None)
  Receive Date: 20120305
  Receipt Date: 20120222
  Transmission Date: 20120608
  Serious: Yes (Congenital Anomaly, Other)
  Sender: FDA-Public Use
  Company Number: GER/GER/12/0023182

PATIENT
  Sex: Male

DRUGS (7)
  1. MYCOPHENOLATE MOFETIL [Suspect]
     Indication: PRODUCT USED FOR UNKNOWN INDICATION
     Dosage: 0.75 GM, TRANSPLACENTAL
     Route: 064
  2. ENALAPRIL MALEATE [Suspect]
     Indication: PRODUCT USED FOR UNKNOWN INDICATION
     Dosage: TRANSPLACENTAL
     Route: 064
  3. AZATHIOPRINE [Suspect]
     Indication: PRODUCT USED FOR UNKNOWN INDICATION
     Dosage: TRANSPLACENTAL
     Route: 064
  4. ASPIRIN [Suspect]
     Indication: PRODUCT USED FOR UNKNOWN INDICATION
     Dosage: TRANSPLACENTAL
     Route: 064
  5. HYDROXYCHLOROQUINE SULFATE [Suspect]
     Indication: PRODUCT USED FOR UNKNOWN INDICATION
     Dosage: TRANSPLACENTAL
     Route: 064
  6. ALENDRONIC ACID (ALENDRONIC ACID) [Suspect]
     Indication: PRODUCT USED FOR UNKNOWN INDICATION
     Dosage: TRANSPLACENTAL
     Route: 064
  7. PREDNISONE TAB [Suspect]
     Indication: PRODUCT USED FOR UNKNOWN INDICATION
     Dosage: TRANSPLACENTAL
     Route: 064

REACTIONS (13)
  - CLINODACTYLY [None]
  - CYST [None]
  - CONGENITAL ARTERIAL MALFORMATION [None]
  - MATERNAL DRUGS AFFECTING FOETUS [None]
  - EXTERNAL AUDITORY CANAL ATRESIA [None]
  - OLFACTORY NERVE DISORDER [None]
  - MICROTIA [None]
  - OESOPHAGEAL ATRESIA [None]
  - HYPERTELORISM OF ORBIT [None]
  - BRACHYCEPHALY [None]
  - RETROGNATHIA [None]
  - CAMPTODACTYLY CONGENITAL [None]
  - COLOBOMA [None]
